FAERS Safety Report 7355195-7 (Version None)
Quarter: 2011Q1

REPORT INFORMATION
  Report Type: 
  Country: None (occurrence: None)
  Receive Date: 20110316
  Receipt Date: 20110308
  Transmission Date: 20110831
  Serious: Yes (Other)
  Sender: FDA-Public Use
  Company Number: DE-BAXTER-2011BH005757

PATIENT
  Age: 10 Year
  Sex: Male
  Weight: 31 kg

DRUGS (5)
  1. ANTRA [Concomitant]
     Route: 048
     Dates: start: 20110302
  2. GAMMAGARD LIQUID [Suspect]
     Indication: KAWASAKI'S DISEASE
     Route: 042
     Dates: start: 20110302, end: 20110302
  3. CLAFORAN [Concomitant]
     Route: 042
     Dates: start: 20110302
  4. ACETYLSALICYLIC ACID [Concomitant]
     Route: 048
     Dates: start: 20110302
  5. IBUPROFEN [Concomitant]
     Route: 048

REACTIONS (7)
  - PERIPHERAL CIRCULATORY FAILURE [None]
  - ANXIETY [None]
  - CYANOSIS [None]
  - PYREXIA [None]
  - CHILLS [None]
  - DYSPNOEA [None]
  - PALLOR [None]
